FAERS Safety Report 12223836 (Version 1)
Quarter: 2016Q1

REPORT INFORMATION
  Report Type: Spontaneous
  Country: SE (occurrence: SE)
  Receive Date: 20160330
  Receipt Date: 20160330
  Transmission Date: 20160526
  Serious: Yes (Other)
  Sender: FDA-Public Use
  Company Number: SE-SA-2016SA059770

PATIENT
  Sex: Female

DRUGS (1)
  1. LEMTRADA [Suspect]
     Active Substance: ALEMTUZUMAB
     Route: 042
     Dates: start: 2015

REACTIONS (3)
  - Psychotic disorder [Unknown]
  - Vaginal haemorrhage [Unknown]
  - Sleep disorder [Unknown]

NARRATIVE: CASE EVENT DATE: 2015
